FAERS Safety Report 4277664-9 (Version None)
Quarter: 2004Q1

REPORT INFORMATION
  Report Type: 
  Country: None (occurrence: None)
  Receive Date: 20040121
  Receipt Date: 20040115
  Transmission Date: 20041129
  Serious: Yes (Hospitalization)
  Sender: FDA-Public Use
  Company Number: TPA2004A00049

PATIENT
  Age: 49 Year
  Sex: Female

DRUGS (5)
  1. ACTOS [Suspect]
     Indication: DIABETES MELLITUS NON-INSULIN-DEPENDENT
     Dosage: 30 MG, 1 IN 1 D, PER ORAL
     Route: 048
     Dates: start: 20000301
  2. HYDROCODONE (HYDROCODONE) [Suspect]
     Indication: PAIN
     Dates: start: 20030401
  3. FUROSEMIDE (FUROSEMIDE) (20 MILLIGRAM) [Concomitant]
  4. GLYBURIDE (GLIBENCLAMIDE) (6 MILLIGRAM) [Concomitant]
  5. ONE-A-DAY (ONE-A-DAY) [Concomitant]

REACTIONS (7)
  - ARTHRITIS [None]
  - BLOOD GLUCOSE INCREASED [None]
  - BLOOD PRESSURE INCREASED [None]
  - CARDIAC FLUTTER [None]
  - CARPAL TUNNEL SYNDROME [None]
  - HYPOAESTHESIA [None]
  - TENSION [None]
